FAERS Safety Report 7788880-3 (Version None)
Quarter: 2011Q3

REPORT INFORMATION
  Report Type: 
  Country: None (occurrence: None)
  Receive Date: 20110930
  Receipt Date: 20110928
  Transmission Date: 20111222
  Serious: Yes (Other)
  Sender: FDA-Public Use
  Company Number: US-SANOFI-AVENTIS-2011SA063852

PATIENT
  Age: 82 Year
  Sex: Female

DRUGS (1)
  1. MULTAQ [Suspect]
     Route: 065
     Dates: start: 20101201, end: 20110927

REACTIONS (3)
  - VENTRICULAR TACHYCARDIA [None]
  - BUNDLE BRANCH BLOCK LEFT [None]
  - ELECTROCARDIOGRAM QT PROLONGED [None]
